FAERS Safety Report 13216799 (Version 1)
Quarter: 2017Q1

REPORT INFORMATION
  Report Type: Spontaneous
  Country: US (occurrence: US)
  Receive Date: 20170210
  Receipt Date: 20170210
  Transmission Date: 20170428
  Serious: Yes (Other)
  Sender: FDA-Public Use
  Company Number: US-BRISTOL-MYERS SQUIBB COMPANY-BMS-2017-009832

PATIENT
  Sex: Male
  Weight: 115.2 kg

DRUGS (2)
  1. HYDREA [Suspect]
     Active Substance: HYDROXYUREA
     Indication: LEUKOCYTOSIS
     Dosage: 1 DF, QD
     Route: 065
     Dates: start: 20151216
  2. ROMIPLOSTIM [Suspect]
     Active Substance: ROMIPLOSTIM
     Indication: IMMUNE THROMBOCYTOPENIC PURPURA
     Dosage: 300 ?G, QWK
     Route: 058
     Dates: start: 20151223, end: 20151226

REACTIONS (2)
  - Acute myeloid leukaemia [Unknown]
  - Platelet count decreased [Unknown]
